FAERS Safety Report 18197807 (Version 10)
Quarter: 2020Q4

REPORT INFORMATION
  Report Type: Report from Study
  Country: CN (occurrence: CN)
  Receive Date: 20200826
  Receipt Date: 20201112
  Transmission Date: 20210113
  Serious: Yes (Hospitalization)
  Sender: FDA-Public Use
  Company Number: CN-EISAI MEDICAL RESEARCH-EC-2020-079426

PATIENT
  Age: 67 Year
  Sex: Female
  Weight: 75.5 kg

DRUGS (14)
  1. LENVATINIB [Suspect]
     Active Substance: LENVATINIB
     Route: 048
     Dates: start: 20200729
  2. LEVAMLODIPINE MALEATE. [Concomitant]
     Active Substance: LEVAMLODIPINE MALEATE
     Dates: start: 20200811
  3. PEMBROLIZUMAB. [Suspect]
     Active Substance: PEMBROLIZUMAB
     Route: 041
     Dates: start: 20200729, end: 20200729
  4. LENVATINIB [Suspect]
     Active Substance: LENVATINIB
     Indication: ENDOMETRIAL CANCER
     Route: 048
     Dates: start: 20200708, end: 20200721
  5. LEVAMLODIPINE MALEATE. [Concomitant]
     Active Substance: LEVAMLODIPINE MALEATE
     Dates: start: 20200811
  6. PEMBROLIZUMAB. [Suspect]
     Active Substance: PEMBROLIZUMAB
     Route: 041
     Dates: start: 20200826
  7. PRAVASTATIN SODIUM. [Concomitant]
     Active Substance: PRAVASTATIN SODIUM
     Dates: start: 201101
  8. NIFEDIPINE. [Concomitant]
     Active Substance: NIFEDIPINE
     Dates: start: 20200731, end: 20200811
  9. PEMBROLIZUMAB. [Suspect]
     Active Substance: PEMBROLIZUMAB
     Indication: ENDOMETRIAL CANCER
     Route: 041
     Dates: start: 20200708, end: 20200708
  10. CARVEDILOL. [Concomitant]
     Active Substance: CARVEDILOL
     Dates: start: 20200731, end: 20200824
  11. AMLODIPINE;VALSARTAN [Concomitant]
     Active Substance: AMLODIPINE\VALSARTAN
     Dates: start: 20200812, end: 20200824
  12. ASPIRIN. [Concomitant]
     Active Substance: ASPIRIN
     Dates: start: 201101
  13. DICLOFENAC SODIUM. [Concomitant]
     Active Substance: DICLOFENAC SODIUM
     Dates: start: 201906
  14. LEVAMLODIPINE BESYLATE [Concomitant]
     Active Substance: LEVAMLODIPINE BESYLATE
     Dates: start: 20200731, end: 20200811

REACTIONS (1)
  - Thrombocytopenia [Recovered/Resolved]

NARRATIVE: CASE EVENT DATE: 20200817
